FAERS Safety Report 16464032 (Version 10)
Quarter: 2020Q2

REPORT INFORMATION
  Report Type: Report from Study
  Country: BE (occurrence: BE)
  Receive Date: 20190621
  Receipt Date: 20200604
  Transmission Date: 20200713
  Serious: Yes (Hospitalization, Other)
  Sender: FDA-Public Use
  Company Number: BE-PFIZER INC-2019090794

PATIENT
  Age: 75 Year
  Sex: Male
  Weight: 65 kg

DRUGS (21)
  1. IRINOTECAN HCL [Suspect]
     Active Substance: IRINOTECAN HYDROCHLORIDE
     Dosage: 235 MG, CYCLIC (EVERY 2 WEEKS)
     Route: 042
     Dates: start: 20190314
  2. IRINOTECAN HCL [Suspect]
     Active Substance: IRINOTECAN HYDROCHLORIDE
     Dosage: 153 MG, CYCLIC (EVERY 2 WEEKS)
     Route: 042
     Dates: start: 20190704
  3. BEVACIZUMAB. [Suspect]
     Active Substance: BEVACIZUMAB
     Indication: COLORECTAL CANCER METASTATIC
     Dosage: 330 MG, CYCLIC (EVERY 2 WEEKS)
     Route: 042
     Dates: start: 20190131
  4. LEUCOVORIN [FOLINIC ACID] [Suspect]
     Active Substance: LEUCOVORIN
     Indication: COLORECTAL CANCER METASTATIC
     Dosage: 5026.1 MG, CYCLIC (EVERY 2 WEEKS)
     Route: 065
     Dates: start: 20190131
  5. FLUOROURACIL. [Suspect]
     Active Substance: FLUOROURACIL
     Indication: COLORECTAL CANCER METASTATIC
     Dosage: 5026.1 MG, CYCLIC (EVERY 2 WEEKS)
     Route: 065
     Dates: start: 20190131
  6. FLUOROURACIL. [Suspect]
     Active Substance: FLUOROURACIL
     Dosage: 2369.4 MG, CYCLIC (EVERY 2 WEEKS)
     Route: 042
     Dates: start: 20190704
  7. BEVACIZUMAB. [Suspect]
     Active Substance: BEVACIZUMAB
     Dosage: 290 MG, CYCLIC (EVERY 2 WEEKS)
     Route: 042
     Dates: start: 20190704
  8. BEVACIZUMAB. [Suspect]
     Active Substance: BEVACIZUMAB
     Dosage: 290 MG, CYCLIC (EVERY 2 WEEKS)
     Route: 042
     Dates: start: 20190811
  9. LEUCOVORIN [FOLINIC ACID] [Suspect]
     Active Substance: LEUCOVORIN
     Dosage: 4873.9 MG, CYCLIC (EVERY 2 WEEKS)
     Route: 042
     Dates: start: 20190314
  10. PANTOMED [PANTOPRAZOLE SODIUM SESQUIHYDRATE] [Concomitant]
     Active Substance: PANTOPRAZOLE SODIUM
     Dosage: UNK
     Route: 065
     Dates: start: 20180803
  11. BEVACIZUMAB. [Suspect]
     Active Substance: BEVACIZUMAB
     Dosage: 310 MG, CYCLIC (EVERY 2 WEEKS)
     Route: 042
     Dates: start: 20190314
  12. OXYNORM [Concomitant]
     Active Substance: OXYCODONE HYDROCHLORIDE
     Dosage: UNK
     Dates: start: 20190821
  13. BUSCOPAN [Concomitant]
     Active Substance: BUTYLSCOPOLAMINE BROMIDE
     Dosage: UNK
     Dates: start: 20181128
  14. DUROGESIC [Concomitant]
     Active Substance: FENTANYL
     Dosage: UNK
     Dates: start: 20190821
  15. MOVICOL [Concomitant]
     Active Substance: POLYETHYLENE GLYCOL 3350\POTASSIUM CHLORIDE\SODIUM BICARBONATE\SODIUM CHLORIDE
     Dosage: UNK
     Dates: start: 20190130
  16. IRINOTECAN HCL [Suspect]
     Active Substance: IRINOTECAN HYDROCHLORIDE
     Indication: COLORECTAL CANCER METASTATIC
     Dosage: 243 MG, CYCLIC (EVERY 2 WEEKS)
     Route: 065
     Dates: start: 20190131
  17. FLUOROURACIL. [Suspect]
     Active Substance: FLUOROURACIL
     Dosage: 4873.9 MG, CYCLIC (EVERY 2 WEEKS)
     Route: 042
     Dates: start: 20190314
  18. LEUCOVORIN [FOLINIC ACID] [Suspect]
     Active Substance: LEUCOVORIN
     Dosage: 2369.4 MG, CYCLIC (EVERY 2 WEEKS)
     Route: 042
     Dates: start: 20190704
  19. ENTEROL [SACCHAROMYCES BOULARDII] [Concomitant]
     Dosage: UNK
  20. LONSURF [Concomitant]
     Active Substance: TIPIRACIL HYDROCHLORIDE\TRIFLURIDINE
     Dosage: UNK
     Dates: start: 20190801, end: 20190811
  21. IMODIUM [Concomitant]
     Active Substance: LOPERAMIDE HYDROCHLORIDE
     Dosage: UNK
     Dates: start: 20190130

REACTIONS (14)
  - Stomatitis [Recovered/Resolved]
  - Cholangitis acute [Recovered/Resolved]
  - Obstruction gastric [Recovered/Resolved]
  - Anaemia [Not Recovered/Not Resolved]
  - Dermatitis allergic [Recovered/Resolved]
  - Orthostatic hypotension [Not Recovered/Not Resolved]
  - Benign prostatic hyperplasia [Not Recovered/Not Resolved]
  - Diarrhoea [Not Recovered/Not Resolved]
  - Neutropenia [Recovered/Resolved]
  - Intestinal obstruction [Recovered/Resolved]
  - Pyrexia [Recovered/Resolved]
  - Diarrhoea [Not Recovered/Not Resolved]
  - Small intestinal obstruction [Recovered/Resolved]
  - Platelet count decreased [Not Recovered/Not Resolved]

NARRATIVE: CASE EVENT DATE: 20190131
